FAERS Safety Report 5046861-7 (Version None)
Quarter: 2006Q3

REPORT INFORMATION
  Report Type: 
  Country: None (occurrence: None)
  Receive Date: 20060705
  Receipt Date: 20060705
  Transmission Date: 20061208
  Serious: Yes (Other)
  Sender: FDA-Public Use
  Company Number: None

PATIENT
  Age: 47 Year
  Sex: Male
  Weight: 102.9665 kg

DRUGS (3)
  1. NIASPAN [Suspect]
     Indication: HYPERTRIGLYCERIDAEMIA
     Dosage: 500 MG    HS     PO
     Route: 048
     Dates: start: 20060403, end: 20060405
  2. GEMFIBROZIL [Concomitant]
  3. INDOMETHACIN [Concomitant]

REACTIONS (7)
  - CLONUS [None]
  - DEPRESSED LEVEL OF CONSCIOUSNESS [None]
  - ERYTHEMA [None]
  - FEELING HOT [None]
  - FLUSHING [None]
  - PRURITUS [None]
  - RASH GENERALISED [None]
